FAERS Safety Report 9493375 (Version 3)
Quarter: 2013Q4

REPORT INFORMATION
  Report Type: Spontaneous
  Country: US (occurrence: US)
  Receive Date: 20130902
  Receipt Date: 20131022
  Transmission Date: 20140711
  Serious: Yes (Other)
  Sender: FDA-Public Use
  Company Number: US-JNJFOC-20130812657

PATIENT
  Sex: Female

DRUGS (5)
  1. LEVAQUIN [Suspect]
     Indication: CYSTITIS
     Route: 048
     Dates: start: 2008, end: 200909
  2. AMBIEN [Concomitant]
     Indication: INSOMNIA
     Route: 065
     Dates: start: 2005
  3. LORTAB [Concomitant]
     Indication: ARTHRITIS
     Route: 065
     Dates: start: 2002
  4. WELLBUTRIN [Concomitant]
     Indication: DEPRESSION
     Route: 065
     Dates: start: 2002
  5. HERBAL OIL NOS [Concomitant]
     Indication: MUSCLE SPASMS
     Route: 065
     Dates: start: 2002

REACTIONS (6)
  - Mobility decreased [Unknown]
  - Tendon rupture [Not Recovered/Not Resolved]
  - Arthropathy [Unknown]
  - Pain [Unknown]
  - Myalgia [Not Recovered/Not Resolved]
  - Arthralgia [Not Recovered/Not Resolved]
